FAERS Safety Report 5863965-7 (Version None)
Quarter: 2008Q3

REPORT INFORMATION
  Report Type: 
  Country: None (occurrence: None)
  Receive Date: 20080829
  Receipt Date: 20080820
  Transmission Date: 20090109
  Serious: Yes (Hospitalization, Other)
  Sender: FDA-Public Use
  Company Number: PHHY2008ZA17362

PATIENT
  Sex: Female
  Weight: 50 kg

DRUGS (1)
  1. RITALIN [Suspect]
     Indication: ATTENTION DEFICIT/HYPERACTIVITY DISORDER
     Route: 048

REACTIONS (5)
  - ANAEMIA [None]
  - ANAEMIA HAEMOLYTIC AUTOIMMUNE [None]
  - IDIOPATHIC THROMBOCYTOPENIC PURPURA [None]
  - MENORRHAGIA [None]
  - THROMBOCYTOPENIA [None]
